FAERS Safety Report 20392710 (Version 2)
Quarter: 2022Q2

REPORT INFORMATION
  Report Type: Report from Study
  Country: US (occurrence: US)
  Receive Date: 20220128
  Receipt Date: 20220414
  Transmission Date: 20220721
  Serious: Yes (Hospitalization, Other)
  Sender: FDA-Public Use
  Company Number: US-INTERCEPT-CT2021003302

PATIENT
  Age: 64 Year
  Sex: Female
  Weight: 106 kg

DRUGS (20)
  1. OBETICHOLIC ACID [Suspect]
     Active Substance: OBETICHOLIC ACID
     Indication: Non-alcoholic steatohepatitis
     Dosage: 10 MILLIGRAM, QD
     Route: 048
     Dates: start: 20180606, end: 20211209
  2. PERJETA [Concomitant]
     Active Substance: PERTUZUMAB
     Indication: Invasive ductal breast carcinoma
     Dosage: UNK MILLIGRAM, SINGLE
     Route: 042
     Dates: start: 20211203, end: 20211203
  3. ERGOCALCIFEROL [Concomitant]
     Active Substance: ERGOCALCIFEROL
     Indication: Vitamin supplementation
     Dosage: 2000 INTERNATIONAL UNIT, QD
     Route: 048
     Dates: start: 2012
  4. POTASSIUM [Concomitant]
     Active Substance: POTASSIUM
     Indication: Nutritional supplementation
     Dosage: 99 MILLIGRAM, QD
     Route: 048
     Dates: start: 2012
  5. ADVIL [Concomitant]
     Active Substance: IBUPROFEN
     Indication: Arthralgia
     Dosage: 800 MILLIGRAM, BID
     Route: 048
     Dates: start: 2012
  6. MAGNESIUM [Concomitant]
     Active Substance: MAGNESIUM
     Indication: Nutritional supplementation
     Dosage: 400 MILLIGRAM, QD
     Route: 048
     Dates: start: 2012, end: 202112
  7. ASPIRIN [Concomitant]
     Active Substance: ASPIRIN
     Indication: Cardiovascular event prophylaxis
     Dosage: 81 MILLIGRAM, QD
     Route: 048
     Dates: start: 2012
  8. GABAPENTIN [Concomitant]
     Active Substance: GABAPENTIN
     Indication: Diabetic neuropathy
     Dosage: 200 MILLIGRAM, BID
     Route: 048
     Dates: start: 2012
  9. GABAPENTIN [Concomitant]
     Active Substance: GABAPENTIN
     Dosage: 400 MILLIGRAM, QD
     Route: 048
     Dates: start: 2012
  10. METFORMIN [Concomitant]
     Active Substance: METFORMIN HYDROCHLORIDE
     Indication: Type 2 diabetes mellitus
     Dosage: 1000 MILLIGRAM, BID
     Route: 048
     Dates: start: 20190301
  11. VICTOZA [Concomitant]
     Active Substance: LIRAGLUTIDE
     Indication: Type 2 diabetes mellitus
     Dosage: 1.8 MILLIGRAM, QD
     Route: 058
     Dates: start: 20200521
  12. LEVOTHYROXINE [Concomitant]
     Active Substance: LEVOTHYROXINE
     Indication: Hypothyroidism
     Dosage: 137 MICROGRAM, ONCE A DAY FOR 6 DAYS OF THE WEEK
     Route: 048
     Dates: start: 20210303
  13. LEVOTHYROXINE [Concomitant]
     Active Substance: LEVOTHYROXINE
     Dosage: 68.5 MICROGRAM, ONCE IN A WEEK
     Route: 048
     Dates: start: 20210303
  14. COENZYME Q10 [Concomitant]
     Active Substance: DIETARY SUPPLEMENT\UBIDECARENONE
     Indication: Nutritional supplementation
     Dosage: 100 MILLIGRAM, BID
     Route: 048
     Dates: start: 20210303
  15. OLMESARTAN [Concomitant]
     Active Substance: OLMESARTAN
     Indication: Hypertension
     Dosage: 40 MILLIGRAM, QD
     Route: 048
     Dates: start: 202105
  16. ZYRTEC [Concomitant]
     Active Substance: CETIRIZINE HYDROCHLORIDE
     Indication: Pruritus
     Dosage: 10 MILLIGRAM, QD
     Route: 048
     Dates: start: 202103
  17. ATORVASTATIN [Concomitant]
     Active Substance: ATORVASTATIN
     Indication: Low density lipoprotein increased
     Dosage: 80 MILLIGRAM, QD
     Route: 048
     Dates: start: 202109
  18. DOCETAXEL [Concomitant]
     Active Substance: DOCETAXEL
     Indication: Invasive ductal breast carcinoma
     Dosage: UNK MILLIGRAM, EVERY 3 WEEKS
     Route: 042
     Dates: start: 20211203, end: 20211203
  19. HERCEPTIN [Concomitant]
     Active Substance: TRASTUZUMAB
     Indication: Invasive ductal breast carcinoma
     Dosage: UNK MILLIGRAM, EVERY 3 WEEKS
     Route: 042
     Dates: start: 20211203, end: 20211203
  20. CARBOPLATIN [Concomitant]
     Active Substance: CARBOPLATIN
     Indication: Invasive ductal breast carcinoma
     Dosage: UNK MILLIGRAM, EVERY 3 WEEKS
     Route: 042
     Dates: start: 20211203, end: 20211203

REACTIONS (2)
  - Gastroenteritis [Recovered/Resolved]
  - Invasive ductal breast carcinoma [Not Recovered/Not Resolved]

NARRATIVE: CASE EVENT DATE: 20211015
